FAERS Safety Report 10044935 (Version 1)
Quarter: 2014Q1

REPORT INFORMATION
  Report Type: Spontaneous
  Country: KR (occurrence: KR)
  Receive Date: 20140328
  Receipt Date: 20140328
  Transmission Date: 20141002
  Serious: Yes (Other)
  Sender: FDA-Public Use
  Company Number: KR-GLAXOSMITHKLINE-B0980753A

PATIENT
  Age: 54 Year
  Sex: Male
  Weight: 77 kg

DRUGS (2)
  1. ADEFOVIR [Suspect]
     Indication: HEPATITIS B
     Dosage: 10MG PER DAY
     Route: 065
  2. LAMIVUDINE-HBV [Suspect]
     Indication: HEPATITIS B
     Route: 065

REACTIONS (17)
  - Osteomalacia [Recovering/Resolving]
  - Hypophosphataemia [Recovering/Resolving]
  - Spinal pain [Unknown]
  - Chest pain [Unknown]
  - Cough [Unknown]
  - Sneezing [Unknown]
  - Body height below normal [Unknown]
  - Arthralgia [Unknown]
  - Hypouricaemia [Unknown]
  - Blood alkaline phosphatase increased [Unknown]
  - Vitamin D decreased [Unknown]
  - Glomerular filtration rate decreased [Unknown]
  - Microalbuminuria [Unknown]
  - Fracture [Unknown]
  - Bone density decreased [Unknown]
  - Drug resistance [Unknown]
  - Musculoskeletal pain [Unknown]
